FAERS Safety Report 5343502-6 (Version None)
Quarter: 2007Q2

REPORT INFORMATION
  Report Type: 
  Country: None (occurrence: None)
  Receive Date: 20070604
  Receipt Date: 20070523
  Transmission Date: 20071010
  Serious: Yes (Hospitalization, Other)
  Sender: FDA-Public Use
  Company Number: PHEH2007US04700

PATIENT
  Age: 63 Year
  Sex: Female

DRUGS (1)
  1. ZELNORM [Suspect]
     Indication: CONSTIPATION
     Dosage: 6 MG, BID
     Route: 048
     Dates: start: 20070313, end: 20070404

REACTIONS (5)
  - CHEST PAIN [None]
  - HYSTERECTOMY [None]
  - MUSCULOSKELETAL PAIN [None]
  - PAIN [None]
  - UTERINE CANCER [None]
